FAERS Safety Report 11717046 (Version 3)
Quarter: 2015Q4

REPORT INFORMATION
  Report Type: Spontaneous
  Country: US (occurrence: US)
  Receive Date: 20151104
  Receipt Date: 20151120
  Transmission Date: 20160304
  Serious: No
  Sender: FDA-Public Use
  Company Number: US-ELI_LILLY_AND_COMPANY-US201103005838

PATIENT
  Age: 83 Year
  Sex: Female

DRUGS (10)
  1. FORTEO [Suspect]
     Active Substance: TERIPARATIDE
     Dosage: 20 UG, QD
     Route: 058
  2. FORTEO [Suspect]
     Active Substance: TERIPARATIDE
     Dosage: 20 UG, QD
     Route: 058
  3. FORTEO [Suspect]
     Active Substance: TERIPARATIDE
     Dosage: 20 UG, QD
     Route: 058
  4. FORTEO [Suspect]
     Active Substance: TERIPARATIDE
     Dosage: 20 UG, QD
     Route: 058
  5. FORTEO [Suspect]
     Active Substance: TERIPARATIDE
     Dosage: 20 UG, QD
     Route: 058
  6. FORTEO [Suspect]
     Active Substance: TERIPARATIDE
     Dosage: 20 UG, QD
     Route: 058
  7. FORTEO [Suspect]
     Active Substance: TERIPARATIDE
     Dosage: 20 UG, QD
     Route: 058
  8. FORTEO [Suspect]
     Active Substance: TERIPARATIDE
     Dosage: 20 UG, QD
     Route: 058
     Dates: end: 20120318
  9. CRESTOR [Concomitant]
     Active Substance: ROSUVASTATIN CALCIUM
  10. FORTEO [Suspect]
     Active Substance: TERIPARATIDE
     Indication: OSTEOPOROSIS
     Dosage: 20 UG, QD
     Route: 058
     Dates: start: 2009, end: 2009

REACTIONS (28)
  - Increased tendency to bruise [Unknown]
  - Feeling abnormal [Unknown]
  - Injection site haemorrhage [Unknown]
  - Pain in extremity [Not Recovered/Not Resolved]
  - Fall [Recovered/Resolved]
  - Insomnia [Unknown]
  - Pruritus [Recovered/Resolved]
  - Drug dose omission [Unknown]
  - Intentional product misuse [Unknown]
  - Blood potassium decreased [Unknown]
  - Injection site erythema [Unknown]
  - Initial insomnia [Unknown]
  - Muscle spasms [Not Recovered/Not Resolved]
  - Intentional product misuse [Unknown]
  - Pruritus [Unknown]
  - Injection site bruising [Not Recovered/Not Resolved]
  - Skin discolouration [Unknown]
  - Somnolence [Unknown]
  - Nasopharyngitis [Unknown]
  - Alopecia [Recovered/Resolved]
  - Middle insomnia [Unknown]
  - Skin fissures [Unknown]
  - Dry skin [Unknown]
  - Erythema [Unknown]
  - Feeling abnormal [Unknown]
  - Bedridden [Unknown]
  - Arthralgia [Not Recovered/Not Resolved]
  - Injection site pain [Unknown]

NARRATIVE: CASE EVENT DATE: 201105
